FAERS Safety Report 8886094 (Version 1)
Quarter: 2012Q4

REPORT INFORMATION
  Report Type: 
  Country: CN (occurrence: CN)
  Receive Date: 20121105
  Receipt Date: 20121105
  Transmission Date: 20130627
  Serious: Yes (Other)
  Sender: FDA-Public Use
  Company Number: CN-ABBOTT-12P-035-1003473-00

PATIENT
  Age: 12 Year
  Sex: Male

DRUGS (2)
  1. DEPAKINE [Suspect]
     Indication: EPILEPSY
     Dosage: Gastro-resistant tablet extended release, 1 dosage form daily
     Route: 048
     Dates: start: 2009, end: 201109
  2. DEPAKINE [Suspect]
     Dosage: Gastro-resistant tablet extended release, 1 dosage form daily
     Route: 048
     Dates: start: 201209

REACTIONS (5)
  - Epilepsy [Recovered/Resolved]
  - Fall [Unknown]
  - Foaming at mouth [Unknown]
  - Trismus [Unknown]
  - Tongue biting [Unknown]
